FAERS Safety Report 18265773 (Version 1)
Quarter: 2020Q3

REPORT INFORMATION
  Report Type: Report from Study
  Country: FR (occurrence: FR)
  Receive Date: 20200915
  Receipt Date: 20200915
  Transmission Date: 20201103
  Serious: Yes (Other)
  Sender: FDA-Public Use
  Company Number: FR-AUROBINDO-AUR-APL-2017-22786

PATIENT
  Age: 1 Month
  Sex: Female
  Weight: .73 kg

DRUGS (5)
  1. FUROSEMIDE. [Suspect]
     Active Substance: FUROSEMIDE
     Indication: OEDEMA
     Dosage: UNK
     Route: 065
  2. DOXAPRAM HYDROCHLORIDE. [Suspect]
     Active Substance: DOXAPRAM HYDROCHLORIDE
     Indication: INFANTILE APNOEA
     Dosage: 1 MILLIGRAM/KILOGRAM, EVERY HOUR
     Route: 042
  3. CAFFEINE. [Suspect]
     Active Substance: CAFFEINE
     Indication: APNOEA
     Dosage: 10 MILLIGRAM/KILOGRAM
     Route: 065
  4. CAFFEINE. [Suspect]
     Active Substance: CAFFEINE
     Dosage: 2.5 MG/KG, DAILY
     Route: 065
  5. DOXAPRAM HYDROCHLORIDE. [Suspect]
     Active Substance: DOXAPRAM HYDROCHLORIDE
     Dosage: 0.75 MILLIGRAM/KILOGRAM, EVERY HOUR
     Route: 042

REACTIONS (1)
  - Hypokalaemia [Recovered/Resolved]
